FAERS Safety Report 7720136-7 (Version None)
Quarter: 2011Q3

REPORT INFORMATION
  Report Type: 
  Country: None (occurrence: None)
  Receive Date: 20110824
  Receipt Date: 20110812
  Transmission Date: 20111222
  Serious: Yes (Other)
  Sender: FDA-Public Use
  Company Number: 1007169

PATIENT
  Age: 52 Year
  Sex: Male
  Weight: 97.3 kg

DRUGS (1)
  1. PACLITAXEL [Suspect]
     Indication: SMALL CELL LUNG CANCER STAGE UNSPECIFIED
     Dosage: 480MG, EVERY 21 DAYS, INTRAVENOUS (NOT OTHERWISE SPECIFIED)
     Route: 042
     Dates: start: 20110713, end: 20110713

REACTIONS (3)
  - HYPERSENSITIVITY [None]
  - ERYTHEMA [None]
  - OXYGEN SATURATION DECREASED [None]
